FAERS Safety Report 6434588-6 (Version None)
Quarter: 2009Q4

REPORT INFORMATION
  Report Type: 
  Country: None (occurrence: None)
  Receive Date: 20091110
  Receipt Date: 20091103
  Transmission Date: 20100525
  Serious: Yes (Hospitalization)
  Sender: FDA-Public Use
  Company Number: A0814741A

PATIENT
  Age: 82 Year
  Sex: Male

DRUGS (4)
  1. VALTREX [Suspect]
     Dosage: 2TAB THREE TIMES PER DAY
     Route: 048
     Dates: start: 20091017, end: 20091017
  2. BABY ASPIRIN [Concomitant]
  3. HYDROCHLOROTHIAZIDE [Concomitant]
  4. FINASTERIDE [Concomitant]

REACTIONS (3)
  - DYSURIA [None]
  - NAUSEA [None]
  - VOMITING [None]
